FAERS Safety Report 9802893 (Version 1)
Quarter: 2014Q1

REPORT INFORMATION
  Report Type: Spontaneous
  Country: US (occurrence: US)
  Receive Date: 20140108
  Receipt Date: 20140108
  Transmission Date: 20141002
  Serious: Yes (Other)
  Sender: FDA-Public Use
  Company Number: US-GLAXOSMITHKLINE-A1042850A

PATIENT
  Age: 57 Year
  Sex: Female

DRUGS (8)
  1. POTIGA [Suspect]
     Indication: CONVULSION
     Route: 048
     Dates: start: 201206, end: 201306
  2. KEPPRA [Concomitant]
  3. VIMPAT [Concomitant]
  4. ATIVAN [Concomitant]
  5. ZONISAMIDE [Concomitant]
  6. SODIUM CHLORIDE [Concomitant]
  7. VITAMINS [Concomitant]
  8. SYNTHROID [Concomitant]

REACTIONS (2)
  - Urinary retention [Not Recovered/Not Resolved]
  - Urinary hesitation [Recovering/Resolving]
